FAERS Safety Report 21851149 (Version 2)
Quarter: 2024Q1

REPORT INFORMATION
  Report Type: Spontaneous
  Country: AU (occurrence: None)
  Receive Date: 20230112
  Receipt Date: 20240321
  Transmission Date: 20240409
  Serious: Yes (Death, Other)
  Sender: FDA-Public Use
  Company Number: AU-ROCHE-3258110

PATIENT
  Sex: Male

DRUGS (12)
  1. RITUXIMAB [Suspect]
     Active Substance: RITUXIMAB
     Indication: Follicular lymphoma
     Route: 065
     Dates: start: 20200225, end: 20200514
  2. OBINUTUZUMAB [Suspect]
     Active Substance: OBINUTUZUMAB
     Indication: Follicular lymphoma
     Route: 042
     Dates: start: 20200826, end: 20210212
  3. CYCLOPHOSPHAMIDE [Suspect]
     Active Substance: CYCLOPHOSPHAMIDE
     Indication: Follicular lymphoma
     Route: 065
     Dates: start: 20040203, end: 20040604
  4. DOXORUBICIN [Suspect]
     Active Substance: DOXORUBICIN
     Indication: Follicular lymphoma
     Route: 065
     Dates: start: 20040203, end: 20040604
  5. VINCRISTINE [Suspect]
     Active Substance: VINCRISTINE
     Indication: Follicular lymphoma
     Route: 065
     Dates: start: 20040203, end: 20040604
  6. PREDNISOLONE [Suspect]
     Active Substance: PREDNISOLONE
     Indication: Follicular lymphoma
     Route: 065
     Dates: start: 20040203, end: 20040604
  7. IFOSFAMIDE [Suspect]
     Active Substance: IFOSFAMIDE
     Indication: Follicular lymphoma
     Route: 065
     Dates: start: 20170111, end: 20170403
  8. CARBOPLATIN [Suspect]
     Active Substance: CARBOPLATIN
     Indication: Follicular lymphoma
     Route: 065
     Dates: start: 20170111, end: 20170403
  9. ETOPOSIDE [Suspect]
     Active Substance: ETOPOSIDE
     Indication: Follicular lymphoma
     Route: 065
     Dates: start: 20040203, end: 20040604
  10. BENDAMUSTINE [Suspect]
     Active Substance: BENDAMUSTINE
     Indication: Follicular lymphoma
     Route: 065
     Dates: start: 20200826, end: 20210212
  11. GEMCITABINE [Suspect]
     Active Substance: GEMCITABINE
     Indication: Follicular lymphoma
     Route: 065
     Dates: start: 20221115, end: 20221201
  12. OXALIPLATIN [Suspect]
     Active Substance: OXALIPLATIN
     Indication: Follicular lymphoma
     Route: 065
     Dates: start: 20221115, end: 20221201

REACTIONS (4)
  - Disease progression [Fatal]
  - Follicular lymphoma refractory [Unknown]
  - Follicular lymphoma [Unknown]
  - Hepatotoxicity [Unknown]
